FAERS Safety Report 5086603-2 (Version None)
Quarter: 2006Q3

REPORT INFORMATION
  Report Type: 
  Country: None (occurrence: None)
  Receive Date: 20060703
  Receipt Date: 20060210
  Transmission Date: 20061208
  Serious: No
  Sender: FDA-Public Use
  Company Number: 2006S1001499

PATIENT
  Age: 23 Year
  Sex: Male

DRUGS (5)
  1. CLOZAPINE [Suspect]
     Indication: SCHIZOPHRENIA, PARANOID TYPE
     Dosage: 150 MG; HS; ORAL
     Route: 048
     Dates: end: 20060207
  2. ARIPIPRAZOLE [Concomitant]
  3. FLUOXETINE [Concomitant]
  4. DEXAMFETAMINE SULFATE/AMFETAMINE SULFATE [Concomitant]
  5. DEXAMFETAMINE SACCHARATE/AMFETAMINE ASPARTATE [Concomitant]

REACTIONS (2)
  - GRANULOCYTOPENIA [None]
  - LEUKOPENIA [None]
